FAERS Safety Report 20640143 (Version 1)
Quarter: 2022Q1

REPORT INFORMATION
  Report Type: Other
  Country: US (occurrence: None)
  Receive Date: 20220327
  Receipt Date: 20220327
  Transmission Date: 20220424
  Serious: Yes (Other)
  Sender: FDA-Public Use
  Company Number: US-ROCHE-3041624

PATIENT
  Sex: Male
  Weight: 113.4 kg

DRUGS (21)
  1. OCREVUS [Suspect]
     Active Substance: OCRELIZUMAB
     Indication: Progressive multiple sclerosis
     Route: 065
  2. ATORVASTATIN [Concomitant]
     Active Substance: ATORVASTATIN
     Route: 048
  3. BACLOFEN [Concomitant]
     Active Substance: BACLOFEN
     Route: 048
  4. CHLORHEXIDINE [Concomitant]
     Active Substance: CHLORHEXIDINE
  5. AMPYRA [Concomitant]
     Active Substance: DALFAMPRIDINE
     Route: 048
  6. DESMOPRESSIN [Concomitant]
     Active Substance: DESMOPRESSIN
     Dosage: TAKE 0.5 TABLETS (100 45 TABLETS MCG TOTAL) BY MOUTH NIGHTLY.
     Route: 048
  7. DEXAMETHASONE [Concomitant]
     Active Substance: DEXAMETHASONE
     Dosage: EVERY 12 HOURS FOR 3 DAYS
     Route: 048
  8. FINASTERIDE [Concomitant]
     Active Substance: FINASTERIDE
     Route: 048
  9. GABAPENTIN [Concomitant]
     Active Substance: GABAPENTIN
     Route: 048
  10. ACETAMINOPHEN\HYDROCODONE [Concomitant]
     Active Substance: ACETAMINOPHEN\HYDROCODONE
     Route: 048
  11. LIPITOR [Concomitant]
     Active Substance: ATORVASTATIN CALCIUM
     Route: 048
  12. LISINOPRIL [Concomitant]
     Active Substance: LISINOPRIL
     Route: 048
  13. MELOXICAM [Concomitant]
     Active Substance: MELOXICAM
     Route: 048
  14. NICOTINE [Concomitant]
     Active Substance: NICOTINE
  15. NORTRIPTYLINE [Concomitant]
     Active Substance: NORTRIPTYLINE
     Route: 048
  16. PANTOPRAZOLE [Concomitant]
     Active Substance: PANTOPRAZOLE
     Route: 048
  17. SERTRALINE [Concomitant]
     Active Substance: SERTRALINE HYDROCHLORIDE
     Route: 048
  18. TAMSULOSIN [Concomitant]
     Active Substance: TAMSULOSIN
     Route: 048
  19. ACETAMINOPHEN [Concomitant]
     Active Substance: ACETAMINOPHEN
     Route: 048
  20. LIDOCAINE [Concomitant]
     Active Substance: LIDOCAINE
  21. SODIUM CHLORIDE [Concomitant]
     Active Substance: SODIUM CHLORIDE
     Route: 042

REACTIONS (14)
  - Multiple sclerosis [Unknown]
  - Demyelination [Unknown]
  - Depression [Unknown]
  - Spinal osteoarthritis [Unknown]
  - Asthenia [Unknown]
  - Back pain [Unknown]
  - Back pain [Unknown]
  - Lumbar spinal stenosis [Unknown]
  - Body temperature decreased [Unknown]
  - Decreased vibratory sense [Unknown]
  - Muscular weakness [Unknown]
  - Muscle spasms [Unknown]
  - Lower urinary tract symptoms [Unknown]
  - Genitourinary symptom [Unknown]
